FAERS Safety Report 8158578-0 (Version None)
Quarter: 2012Q1

REPORT INFORMATION
  Report Type: 
  Country: None (occurrence: None)
  Receive Date: 20120223
  Receipt Date: 20120214
  Transmission Date: 20120608
  Serious: Yes (Hospitalization)
  Sender: FDA-Public Use
  Company Number: US-BAYER-2011-076189

PATIENT
  Age: 18 Year
  Sex: Female
  Weight: 82 kg

DRUGS (2)
  1. AZITHROMYCIN [Concomitant]
     Dosage: 250 MG, UNK
     Route: 048
     Dates: start: 20090626
  2. YAZ [Suspect]
     Indication: CONTRACEPTION
     Dosage: UNK
     Dates: start: 20090302, end: 20090901

REACTIONS (8)
  - ABDOMINAL PAIN [None]
  - VOMITING [None]
  - FOOD INTOLERANCE [None]
  - CHOLECYSTITIS INFECTIVE [None]
  - CHOLELITHIASIS [None]
  - NAUSEA [None]
  - CHOLECYSTITIS [None]
  - REFLUX GASTRITIS [None]
